FAERS Safety Report 14851517 (Version 5)
Quarter: 2018Q3

REPORT INFORMATION
  Report Type: Report from Study
  Country: DE (occurrence: DE)
  Receive Date: 20180507
  Receipt Date: 20180709
  Transmission Date: 20181010
  Serious: Yes (Life-Threatening, Hospitalization, Other)
  Sender: FDA-Public Use
  Company Number: DE-BAXTER-2018BAX006936

PATIENT
  Age: 53 Year
  Sex: Male
  Weight: 87 kg

DRUGS (13)
  1. ADRIAMYCIN [Suspect]
     Active Substance: DOXORUBICIN HYDROCHLORIDE
     Indication: PLASMA CELL MYELOMA
     Route: 042
     Dates: start: 20170627, end: 20170630
  2. EMPLICITI [Suspect]
     Active Substance: ELOTUZUMAB
     Indication: PLASMA CELL MYELOMA
     Dosage: DOSAGE FORM: UNSPECIFIED, C1 PLUS 2, DAY1, 8, 15, C3 PLUS 4 DAY 1, 11
     Route: 042
     Dates: start: 20170307, end: 20170619
  3. ENDOXAN 1G [Suspect]
     Active Substance: CYCLOPHOSPHAMIDE
     Indication: PLASMA CELL MYELOMA
     Dosage: DOSAGE FORM: UNSPECIFIED
     Route: 042
     Dates: start: 20170627, end: 20170630
  4. DECADRON [Suspect]
     Active Substance: DEXAMETHASONE
     Dosage: DOSAGE FORM: UNSPECIFIED, ON DAYS 1,8, 15 OF CYCLE 1 AND 2; DAY 1 AND 11 OF CYCLE 3 AND 4
     Route: 042
     Dates: start: 20170307, end: 20170619
  5. VELCADE [Suspect]
     Active Substance: BORTEZOMIB
     Dosage: DOSAGE FORM: LYOPHILIZED POWDER
     Route: 058
     Dates: start: 20171113, end: 20171224
  6. DECADRON [Suspect]
     Active Substance: DEXAMETHASONE
     Indication: PLASMA CELL MYELOMA
     Dosage: DOSAGE FORM: UNSPECIFIED, ON DAYS 1,8, 15 OF CYCLE 1 AND 2; DAY 1 AND 11 OF CYCLE 3 AND
     Route: 048
     Dates: start: 20170627, end: 20170630
  7. REVLIMID [Suspect]
     Active Substance: LENALIDOMIDE
     Dosage: DOSAGE FORM: UNSPECIFIED
     Route: 048
     Dates: start: 20171113, end: 20171224
  8. MELPHALAN. [Concomitant]
     Active Substance: MELPHALAN
     Indication: PRODUCT USED FOR UNKNOWN INDICATION
     Dosage: DOSAGE FORM: UNSPECIFIED
     Route: 042
  9. DECADRON [Suspect]
     Active Substance: DEXAMETHASONE
     Dosage: DOSAGE FORM: UNSPECIFIED, ON DAYS 2, 4?5, 9, 11?12
     Route: 048
     Dates: start: 20170307, end: 20170619
  10. DECADRON [Suspect]
     Active Substance: DEXAMETHASONE
     Dosage: DOSAGE FORM: UNSPECIFIED, C 1 PLUS 2, DAY 1,8, 15, C3 PLUS 4 DAY 1, 11
     Route: 048
     Dates: start: 20170307, end: 20170619
  11. DECADRON [Suspect]
     Active Substance: DEXAMETHASONE
     Dosage: DOSAGE FORM: UNSPECIFIED, ON DAYS 1,8, 15 OF CYCLE 1 AND 2; DAY 1 AND 11 OF CYCLE 3 AND 4
     Route: 048
     Dates: start: 20171113, end: 20171224
  12. REVLIMID [Suspect]
     Active Substance: LENALIDOMIDE
     Indication: PLASMA CELL MYELOMA
     Dosage: DOSAGE FORM: UNSPECIFIED, FOR 2 WEEKS AND 1 WEEK OFF
     Route: 048
     Dates: start: 20170307, end: 20170619
  13. VELCADE [Suspect]
     Active Substance: BORTEZOMIB
     Indication: PLASMA CELL MYELOMA
     Dosage: DOSAGE FORM: LYOPHILIZED POWDER, ON DAYS 1, 4, 8, 11 AND ONE WEEK OFF OF 21 DAY CYCLE, 2.6 MG TWICE
     Route: 058
     Dates: start: 20170307, end: 20170405

REACTIONS (7)
  - Colon operation [Recovered/Resolved with Sequelae]
  - Malabsorption [Recovered/Resolved with Sequelae]
  - Vomiting [Recovered/Resolved with Sequelae]
  - Nausea [Recovered/Resolved with Sequelae]
  - Ileostomy [Recovered/Resolved]
  - Abdominal wall abscess [Recovered/Resolved]
  - Decreased appetite [Recovered/Resolved with Sequelae]

NARRATIVE: CASE EVENT DATE: 20170912
